FAERS Safety Report 19200801 (Version 1)
Quarter: 2021Q2

REPORT INFORMATION
  Report Type: Spontaneous
  Country: NL (occurrence: NL)
  Receive Date: 20210430
  Receipt Date: 20210430
  Transmission Date: 20210717
  Serious: Yes (Other)
  Sender: FDA-Public Use
  Company Number: NL-BAYER-2021-129339

PATIENT
  Age: 51 Year
  Sex: Female
  Weight: 101 kg

DRUGS (9)
  1. VAXIGRIPTETRA [Suspect]
     Active Substance: INFLUENZA VIRUS VACCINE QUADRIVALENT TYPE A+B
     Indication: PRODUCT USED FOR UNKNOWN INDICATION
     Dosage: UNK
     Route: 065
     Dates: start: 20201110, end: 20201110
  2. NAPROXEN SODIUM ({= 220 MG) [Suspect]
     Active Substance: NAPROXEN SODIUM
     Indication: INFLAMMATION
     Dosage: 500 UNK
     Route: 065
  3. METHOTREXATE. [Suspect]
     Active Substance: METHOTREXATE
     Indication: RHEUMATOID ARTHRITIS
     Dosage: 1 DF, QW (6 TABLETS)
     Route: 065
     Dates: start: 201909
  4. SULFASALAZINE. [Suspect]
     Active Substance: SULFASALAZINE
     Indication: RHEUMATOID ARTHRITIS
     Dosage: 3 DF
     Route: 065
  5. SULFASALAZINE. [Suspect]
     Active Substance: SULFASALAZINE
     Indication: RHEUMATOID ARTHRITIS
     Dosage: (2X PER DAY 2 AND 1 TABLET (BUILD?UP)
     Route: 065
     Dates: start: 20191117
  6. DICLOFENAC [Concomitant]
     Active Substance: DICLOFENAC
     Indication: RHEUMATIC DISORDER
     Dosage: UNK
     Route: 065
  7. SULFASALAZINE. [Suspect]
     Active Substance: SULFASALAZINE
     Indication: RHEUMATOID ARTHRITIS
     Dosage: 2X PER DAY 1 TABLET
     Route: 065
     Dates: end: 20210225
  8. PARACETAMOL [Concomitant]
     Active Substance: ACETAMINOPHEN
     Indication: PAIN
     Dosage: 500 UNK (2X500 MULTIPLE TIMES IN DAY)
     Route: 065
  9. THYRAX DUO [Concomitant]
     Active Substance: LEVOTHYROXINE SODIUM
     Indication: AUTOIMMUNE THYROID DISORDER
     Dosage: .125 MILLIGRAM DAILY;

REACTIONS (14)
  - Drug ineffective [Unknown]
  - Inflammation [Recovered/Resolved]
  - Urticaria [Recovered/Resolved]
  - Blood test abnormal [Unknown]
  - Lacrimation increased [Unknown]
  - Burning feet syndrome [Recovered/Resolved]
  - Oropharyngeal pain [Unknown]
  - Hypotension [Unknown]
  - Myalgia [Unknown]
  - Neuropathy peripheral [Recovering/Resolving]
  - Increased viscosity of upper respiratory secretion [Unknown]
  - Muscle strength abnormal [Unknown]
  - Therapeutic response unexpected [Recovered/Resolved]
  - Epistaxis [Unknown]

NARRATIVE: CASE EVENT DATE: 2019
